FAERS Safety Report 7366039-1 (Version None)
Quarter: 2011Q1

REPORT INFORMATION
  Report Type: 
  Country: None (occurrence: None)
  Receive Date: 20110322
  Receipt Date: 20110308
  Transmission Date: 20110831
  Serious: Yes (Hospitalization)
  Sender: FDA-Public Use
  Company Number: US-JNJFOC-20070400364

PATIENT
  Sex: Female

DRUGS (4)
  1. AZATHIOPRINE [Concomitant]
  2. INFLIXIMAB [Suspect]
     Indication: INFLAMMATORY BOWEL DISEASE
     Route: 042
  3. PREDNISONE [Concomitant]
  4. HUMIRA [Concomitant]
     Route: 058

REACTIONS (1)
  - CROHN'S DISEASE [None]
